FAERS Safety Report 6402782-6 (Version None)
Quarter: 2009Q4

REPORT INFORMATION
  Report Type: 
  Country: None (occurrence: None)
  Receive Date: 20091016
  Receipt Date: 20070329
  Transmission Date: 20100525
  Serious: Yes (Disabling)
  Sender: FDA-Public Use
  Company Number: US-ASTRAZENECA-2006UW07729

PATIENT
  Sex: Female
  Weight: 70.3 kg

DRUGS (3)
  1. SEROQUEL [Suspect]
     Dosage: 25-100 MG
     Route: 048
     Dates: start: 20050222
  2. XANAX [Concomitant]
     Dates: start: 20050222
  3. WELLBUTRIN XL [Concomitant]
     Dates: start: 20050222

REACTIONS (1)
  - ILL-DEFINED DISORDER [None]
